FAERS Safety Report 6071450-5 (Version None)
Quarter: 2009Q1

REPORT INFORMATION
  Report Type: 
  Country: None (occurrence: None)
  Receive Date: 20090205
  Receipt Date: 20090130
  Transmission Date: 20090719
  Serious: Yes (Hospitalization)
  Sender: FDA-Public Use
  Company Number: A-US2008-21183

PATIENT
  Age: 59 Year
  Sex: Male

DRUGS (14)
  1. TRACLEER [Suspect]
     Indication: PULMONARY ARTERIAL HYPERTENSION
     Dosage: ORAL
     Route: 048
     Dates: start: 20080311, end: 20080610
  2. REVATIO [Concomitant]
  3. COUMADIN [Concomitant]
  4. ATENOLOL [Concomitant]
  5. FUROSEMIDE (FUROSEMIDE) [Concomitant]
  6. METOLAZONE [Concomitant]
  7. AVODART [Concomitant]
  8. DARVOCET [Concomitant]
  9. SPIRIVA [Concomitant]
  10. GABAPENTIN [Concomitant]
  11. METHOCARBAMOL [Concomitant]
  12. PRILOSEC [Concomitant]
  13. POTASSIUM CHLORIDE [Concomitant]
  14. SPIRONOLACTONE [Concomitant]

REACTIONS (9)
  - ALANINE AMINOTRANSFERASE INCREASED [None]
  - ASPARTATE AMINOTRANSFERASE INCREASED [None]
  - ASTHENIA [None]
  - BLOOD ALKALINE PHOSPHATASE INCREASED [None]
  - ENCEPHALOPATHY [None]
  - HAEMODIALYSIS [None]
  - HEPATIC CONGESTION [None]
  - HYPOVOLAEMIA [None]
  - RENAL FAILURE ACUTE [None]
